FAERS Safety Report 9304234 (Version 2)
Quarter: 2013Q2

REPORT INFORMATION
  Report Type: Spontaneous
  Country: CA (occurrence: CA)
  Receive Date: 20130522
  Receipt Date: 20130528
  Transmission Date: 20140414
  Serious: Yes (Other)
  Sender: FDA-Public Use
  Company Number: CHPA2013CA008554

PATIENT
  Age: 57 Year
  Sex: Female

DRUGS (7)
  1. BUCKLEY^S UNKNOWN [Suspect]
     Indication: NASOPHARYNGITIS
     Dosage: 6 TABLETS IN 30 HOURS
     Route: 048
  2. BUCKLEY^S UNKNOWN [Suspect]
     Indication: OROPHARYNGEAL PAIN
     Dosage: 1 TO 4 UNK, UNK
     Route: 048
  3. ROBITUSSIN ^ROBINS^ [Concomitant]
     Indication: NASOPHARYNGITIS
     Dosage: UNK
     Dates: start: 20130515, end: 20130516
  4. MULTIVITAMINS [Concomitant]
     Dosage: UNK
  5. IRON [Concomitant]
     Dosage: UNK
  6. VITAMIN D [Concomitant]
  7. BENADRYL ^PFIZER WARNER-LAMBERT^ [Concomitant]
     Indication: HYPERSENSITIVITY
     Dosage: UNK

REACTIONS (5)
  - Wheezing [Recovering/Resolving]
  - Dyspnoea [Recovering/Resolving]
  - Hypersensitivity [Recovering/Resolving]
  - Concomitant disease aggravated [Recovering/Resolving]
  - Underdose [Unknown]
